FAERS Safety Report 4597633-9 (Version None)
Quarter: 2005Q1

REPORT INFORMATION
  Report Type: 
  Country: None (occurrence: None)
  Receive Date: 20050303
  Receipt Date: 20050224
  Transmission Date: 20050727
  Serious: Yes (Other)
  Sender: FDA-Public Use
  Company Number: US-GLAXOSMITHKLINE-A0547165A

PATIENT
  Sex: Female

DRUGS (5)
  1. LAMICTAL [Suspect]
     Indication: BIPOLAR DISORDER
     Route: 048
     Dates: start: 20040901
  2. ZYPREXA [Concomitant]
  3. LITHIUM [Concomitant]
  4. ALDACTONE [Concomitant]
  5. AVODART [Concomitant]

REACTIONS (2)
  - DERMATITIS EXFOLIATIVE [None]
  - MUSCULAR DYSTROPHY [None]
